FAERS Safety Report 26196574 (Version 1)
Quarter: 2025Q4

REPORT INFORMATION
  Report Type: Spontaneous
  Country: US (occurrence: US)
  Receive Date: 20251224
  Receipt Date: 20251224
  Transmission Date: 20260117
  Serious: Yes (unspecified)
  Sender: IMPRIMIS NJOF, LLC
  Company Number: US-Imprimis NJOF, LLC-2191087

PATIENT
  Sex: Male

DRUGS (1)
  1. ATROPINE SULFATE [Suspect]
     Active Substance: ATROPINE SULFATE

REACTIONS (1)
  - Epistaxis [Recovering/Resolving]
